FAERS Safety Report 8575385-5 (Version None)
Quarter: 2012Q3

REPORT INFORMATION
  Report Type: 
  Country: None (occurrence: None)
  Receive Date: 20120807
  Receipt Date: 20120801
  Transmission Date: 20120928
  Serious: No
  Sender: FDA-Public Use
  Company Number: US-PFIZER INC-2012187415

PATIENT
  Age: 53 Year
  Sex: Female
  Weight: 111.11 kg

DRUGS (6)
  1. HYZAAR [Concomitant]
     Indication: HYPERTENSION
     Dosage: [HYDROCHLOROTHIAZIDE 12.5 MG/ LOSARTAN POTASSIUM 100MG] DAILY
  2. NEXIUM [Concomitant]
     Indication: DYSPEPSIA
     Dosage: 40 MG, 1X/DAY
  3. TRAZODONE HCL [Suspect]
     Indication: INSOMNIA
     Dosage: 75 MG, 1X/DAY
  4. SYNTHROID [Concomitant]
     Indication: THYROID DISORDER
     Dosage: 125 UG, 1X/DAY
  5. PRISTIQ [Suspect]
     Indication: DEPRESSION
     Dosage: 50 MG, 1X/DAY
     Route: 048
     Dates: end: 20120701
  6. PRAVASTATIN [Concomitant]
     Indication: BLOOD CHOLESTEROL INCREASED
     Dosage: 20 MG, 1X/DAY

REACTIONS (2)
  - INSOMNIA [None]
  - DRUG INEFFECTIVE [None]
